FAERS Safety Report 17154435 (Version 1)
Quarter: 2019Q4

REPORT INFORMATION
  Report Type: Spontaneous
  Country: RO (occurrence: RO)
  Receive Date: 20191213
  Receipt Date: 20191213
  Transmission Date: 20200122
  Serious: Yes (Life-Threatening, Hospitalization)
  Sender: FDA-Public Use
  Company Number: RO-BAXTER-2019BAX025225

PATIENT
  Age: 74 Year
  Sex: Female

DRUGS (2)
  1. DOXIL [Suspect]
     Active Substance: DOXORUBICIN HYDROCHLORIDE
     Indication: OVARIAN CANCER
     Route: 065
  2. AVASTIN [Suspect]
     Active Substance: BEVACIZUMAB
     Indication: OVARIAN CANCER
     Dosage: DOSAGE FORM: SUSPENSION FOR INFUSION
     Route: 065
     Dates: start: 20191009

REACTIONS (6)
  - Abdominal pain upper [Recovering/Resolving]
  - Pyrexia [Recovering/Resolving]
  - Pleurisy [Recovering/Resolving]
  - Oedema peripheral [Recovering/Resolving]
  - Hypertension [Recovering/Resolving]
  - Hypoproteinaemia [Recovering/Resolving]
